FAERS Safety Report 9187006 (Version 1)
Quarter: 2013Q1

REPORT INFORMATION
  Report Type: Spontaneous
  Country: US (occurrence: US)
  Receive Date: 20130325
  Receipt Date: 20130325
  Transmission Date: 20140127
  Serious: Yes (Death)
  Sender: FDA-Public Use
  Company Number: US-PFIZER INC-2013092991

PATIENT
  Age: 78 Year
  Sex: Male

DRUGS (1)
  1. XALKORI [Suspect]
     Dosage: 250 MG, UNK
     Route: 048
     Dates: start: 20130117

REACTIONS (1)
  - Death [Fatal]
